FAERS Safety Report 4354388-0 (Version None)
Quarter: 2004Q2

REPORT INFORMATION
  Report Type: 
  Country: None (occurrence: None)
  Receive Date: 20040503
  Receipt Date: 20040422
  Transmission Date: 20050107
  Serious: Yes (Hospitalization)
  Sender: FDA-Public Use
  Company Number: 2004CG00786

PATIENT
  Age: 82 Year
  Sex: Female
  Weight: 53 kg

DRUGS (6)
  1. NEXIUM [Suspect]
     Dosage: 20 MG DAILY PO
     Route: 048
     Dates: start: 20031121, end: 20040325
  2. MOTILIUM [Suspect]
     Dosage: 12 MG TID PO
     Route: 048
     Dates: end: 20040325
  3. TIAPRIDAL [Suspect]
     Dates: end: 20040325
  4. EBIXA [Suspect]
     Dosage: 20 MG DAILY PO
     Route: 048
     Dates: start: 20031015, end: 20040325
  5. CORDARONE [Suspect]
     Dosage: 200 MG PO
     Route: 048
     Dates: end: 20040325
  6. LASIX [Suspect]
     Dosage: 20 MG DAILY PO
     Route: 048
     Dates: start: 20040130, end: 20040325

REACTIONS (4)
  - FEBRILE NEUTROPENIA [None]
  - GENERAL PHYSICAL HEALTH DETERIORATION [None]
  - LUNG DISORDER [None]
  - SEPTIC SHOCK [None]
